FAERS Safety Report 20563055 (Version 1)
Quarter: 2022Q1

REPORT INFORMATION
  Report Type: Report from Study
  Country: US (occurrence: US)
  Receive Date: 20220307
  Receipt Date: 20220307
  Transmission Date: 20220423
  Serious: Yes (Other)
  Sender: FDA-Public Use
  Company Number: US-ABBVIE-21K-163-4190565-00

PATIENT
  Sex: Male

DRUGS (1)
  1. IMBRUVICA [Suspect]
     Active Substance: IBRUTINIB
     Indication: Chronic lymphocytic leukaemia
     Route: 048
     Dates: start: 201804

REACTIONS (6)
  - Skin disorder [Unknown]
  - Contusion [Not Recovered/Not Resolved]
  - Papule [Unknown]
  - Impaired healing [Unknown]
  - Prostatic disorder [Unknown]
  - Unevaluable event [Unknown]
